FAERS Safety Report 12328748 (Version 1)
Quarter: 2016Q2

REPORT INFORMATION
  Report Type: Spontaneous
  Country: US (occurrence: US)
  Receive Date: 20160503
  Receipt Date: 20160503
  Transmission Date: 20160815
  Serious: No
  Sender: FDA-Public Use
  Company Number: US-BEH-2015050512

PATIENT
  Sex: Female
  Weight: 63 kg

DRUGS (22)
  1. LIDOCAINE/PRILOCAINE [Concomitant]
     Dosage: APPLY TOPICALLY PRIOR TO INFUSION
     Route: 061
  2. EPIPEN 0.3 MG [Concomitant]
     Indication: ANAPHYLACTIC REACTION
     Dosage: IM AS NEEDED
     Route: 030
  3. PRILOSEC DR 20 MG [Concomitant]
     Dosage: 1 CAPSULE BY MOUTH DAILY
     Route: 048
  4. HIZENTRA [Suspect]
     Active Substance: HUMAN IMMUNOGLOBULIN G
     Indication: IMMUNODEFICIENCY COMMON VARIABLE
  5. VITAMIN D 1000 UNITS [Concomitant]
     Dosage: 200 UNITS BY MOUTH DAILY
  6. PROVENTIL HFA 20 MCG [Concomitant]
     Dosage: 1 DOSE INHALED AS NEEDED
  7. MONTELUKAST 10 MG [Concomitant]
     Active Substance: MONTELUKAST SODIUM
     Route: 048
  8. ALLEGRA 180 TABLETS [Concomitant]
     Dosage: TAKE 1 TABLET MY MOUTH DAILY
     Route: 048
  9. BORON 95.15% POWDER [Concomitant]
     Dosage: 2 TABLETS BY MOUTH IN THE MORNING AND EVENING.
     Route: 048
  10. DIPHENHYDRAMINE 25 MG [Concomitant]
     Indication: ANAPHYLACTIC REACTION
     Dosage: 1 TABLET BY MOUTH DAILY
     Route: 048
  11. MAGNESIUM  250 MG [Concomitant]
     Dosage: 1 TABLET BY MOUTH DAILY
     Route: 048
  12. HIZENTRA [Suspect]
     Active Substance: HUMAN IMMUNOGLOBULIN G
  13. RESTASIS 0.05% EYE EMULSION [Concomitant]
     Dosage: 1 DROP IN BOTH EYES DAILY
     Route: 047
  14. PRAVASTATIN 10 MG [Concomitant]
     Active Substance: PRAVASTATIN SODIUM
     Dosage: 1 TABLET BY MOUTH EVERY OTHER DAY
     Route: 048
  15. MAGNESIUM 250 MG [Concomitant]
     Dosage: 1 TABLET BY MOUTH DAILY
     Route: 048
  16. LMX 4% [Concomitant]
     Dosage: APPLY TOPICALLY PRIOR TO INFUSION
     Route: 061
  17. NEURONTIN 600 MG [Concomitant]
     Dosage: 1 CAPSULE BY MOUTH DAILY
     Route: 048
  18. TIAZAC ER 300 MG [Concomitant]
     Dosage: 1 CAPSULE BY MOUTH DAILY
     Route: 048
  19. NASACORT AQ NASAL SPRAY [Concomitant]
     Dosage: 1 SPRAY IN EACH NOSTRIL AS NEEDED
     Route: 045
  20. CALCIUM 500+D [Concomitant]
     Active Substance: CALCIUM\VITAMIN D
     Dosage: 1 TABLET BY MOUTH DAILY
     Route: 048
  21. VITAMIN D3 400 UNIT [Concomitant]
     Dosage: 1 DOSE AS DIRECTED
  22. PULMICORT 90MCG FLEXHALER [Concomitant]
     Dosage: 1 DOSE INHALED AS DIRECTED
     Route: 045

REACTIONS (1)
  - Influenza like illness [Unknown]
